FAERS Safety Report 16638498 (Version 2)
Quarter: 2019Q3

REPORT INFORMATION
  Report Type: Spontaneous
  Country: US (occurrence: US)
  Receive Date: 20190726
  Receipt Date: 20190730
  Transmission Date: 20191004
  Serious: No
  Sender: FDA-Public Use
  Company Number: US-PFIZER INC-2019317420

PATIENT
  Age: 51 Year
  Sex: Male
  Weight: 63.5 kg

DRUGS (4)
  1. LISINOPRIL HCT [HYDROCHLOROTHIAZIDE;LISINOPRIL] [Concomitant]
     Active Substance: HYDROCHLOROTHIAZIDE\LISINOPRIL
     Indication: HYPERTENSION
     Dosage: UNK UNK, 1X/DAY, (20/25MG TABLET TAKEN BY MOUTH ONCE DAILY)
     Route: 048
     Dates: start: 2017
  2. ESTRING [Suspect]
     Active Substance: ESTRADIOL
     Dosage: UNK
  3. AMLODIPINE [Concomitant]
     Active Substance: AMLODIPINE BESYLATE
     Indication: HYPERTENSION
     Dosage: 5 MG, 1X/DAY
     Route: 048
     Dates: start: 2017
  4. CARVEDILOL. [Concomitant]
     Active Substance: CARVEDILOL
     Indication: HYPERTENSION
     Dosage: 25 MG, 2X/DAY
     Route: 048
     Dates: start: 2017

REACTIONS (4)
  - Accidental exposure to product [Unknown]
  - Penile erythema [Recovering/Resolving]
  - Hypersensitivity [Recovering/Resolving]
  - Penile contusion [Recovering/Resolving]

NARRATIVE: CASE EVENT DATE: 20190721
